FAERS Safety Report 15404696 (Version 1)
Quarter: 2018Q3

REPORT INFORMATION
  Report Type: Spontaneous
  Country: FR (occurrence: FR)
  Receive Date: 20180919
  Receipt Date: 20180919
  Transmission Date: 20181010
  Serious: No
  Sender: FDA-Public Use
  Company Number: FR-BIOVERATIV-2018BV000650

PATIENT
  Age: 59 Year
  Sex: Male

DRUGS (4)
  1. ALPROLIX [Suspect]
     Active Substance: EFTRENONACOG ALFA
     Dosage: 24 HOURS, 48 HOURS, AND 72 HOURS AFTER FIRST INJECTION THEN AT DAY 10
     Route: 065
  2. ALPROLIX [Suspect]
     Active Substance: EFTRENONACOG ALFA
     Indication: PROPHYLAXIS
     Dosage: BEFORE SURGERY
     Route: 065
  3. ALPROLIX [Suspect]
     Active Substance: EFTRENONACOG ALFA
     Dosage: 12 HOURS AFTER FIRST INJECTION
     Route: 065
  4. ALPROLIX [Suspect]
     Active Substance: EFTRENONACOG ALFA
     Indication: FACTOR IX DEFICIENCY
     Dosage: ONE HOUR BEFORE GASTRO?COLOSCOPY
     Route: 065

REACTIONS (2)
  - Urinary retention [Unknown]
  - Prostatectomy [Unknown]
